FAERS Safety Report 9467430 (Version 1)
Quarter: 2013Q3

REPORT INFORMATION
  Report Type: Spontaneous
  Country: CA (occurrence: CA)
  Receive Date: 20130821
  Receipt Date: 20130821
  Transmission Date: 20140515
  Serious: Yes (Hospitalization)
  Sender: FDA-Public Use
  Company Number: CA-ROCHE-1261458

PATIENT
  Age: 63 Year
  Sex: Female

DRUGS (19)
  1. NAPROXEN [Suspect]
     Indication: PRODUCT USED FOR UNKNOWN INDICATION
     Route: 065
  2. CELEBREX [Suspect]
     Indication: PRODUCT USED FOR UNKNOWN INDICATION
     Route: 065
  3. IBUPROFEN [Suspect]
     Indication: PRODUCT USED FOR UNKNOWN INDICATION
     Route: 065
  4. WARFARIN [Suspect]
     Indication: PRODUCT USED FOR UNKNOWN INDICATION
     Route: 048
  5. PLACEBO [Suspect]
     Indication: PRODUCT USED FOR UNKNOWN INDICATION
     Route: 065
  6. DIGOXIN-SPECIFIC ANTIBODY FRAGMENTS [Concomitant]
     Route: 065
  7. COUMADIN [Concomitant]
     Route: 065
  8. DIOVAN [Concomitant]
     Route: 065
  9. HEPARIN SODIUM [Concomitant]
     Route: 042
  10. HYDROCHLOROTHIAZIDE [Concomitant]
     Route: 065
  11. HYDROXYCHLOROQUINE [Concomitant]
     Route: 065
  12. K-DUR [Concomitant]
     Route: 065
  13. KETODERM [Concomitant]
     Route: 065
  14. LOPRESOR [Concomitant]
     Route: 065
  15. NEXIUM [Concomitant]
     Route: 065
  16. PREVACID [Concomitant]
     Route: 065
  17. TYLENOL [Concomitant]
     Route: 065
  18. ACETAMINOPHEN WITH CODEINE [Concomitant]
     Route: 065
  19. ADALAT XL [Concomitant]
     Route: 065

REACTIONS (3)
  - Abdominal pain [Not Recovered/Not Resolved]
  - Abdominal wall haematoma [Not Recovered/Not Resolved]
  - Haemoglobin decreased [Not Recovered/Not Resolved]
